FAERS Safety Report 19495830 (Version 1)
Quarter: 2021Q3

REPORT INFORMATION
  Report Type: Spontaneous
  Country: US (occurrence: US)
  Receive Date: 20210702
  Receipt Date: 20210702
  Transmission Date: 20211014
  Serious: Yes (Death)
  Sender: FDA-Public Use
  Company Number: None

PATIENT
  Age: 72 Year
  Sex: Male

DRUGS (9)
  1. TORSEMIDE. [Concomitant]
     Active Substance: TORSEMIDE
  2. GABAPENTIN. [Concomitant]
     Active Substance: GABAPENTIN
  3. METOLAZONE. [Concomitant]
     Active Substance: METOLAZONE
  4. DICLOFENAC GEL [Concomitant]
     Active Substance: DICLOFENAC
  5. VYNDAMAX [Suspect]
     Active Substance: TAFAMIDIS
     Indication: PRODUCT USED FOR UNKNOWN INDICATION
     Route: 048
     Dates: start: 20210507, end: 20210621
  6. MIDODRINE [Concomitant]
     Active Substance: MIDODRINE
  7. ALLOPURINOL. [Concomitant]
     Active Substance: ALLOPURINOL
  8. METFORMIN [Concomitant]
     Active Substance: METFORMIN HYDROCHLORIDE
  9. COLCHICINE. [Concomitant]
     Active Substance: COLCHICINE

REACTIONS (1)
  - Death [None]

NARRATIVE: CASE EVENT DATE: 20210621
